FAERS Safety Report 14128110 (Version 2)
Quarter: 2017Q4

REPORT INFORMATION
  Report Type: Report from Study
  Country: US (occurrence: US)
  Receive Date: 20171026
  Receipt Date: 20171214
  Transmission Date: 20180321
  Serious: Yes (Other)
  Sender: FDA-Public Use
  Company Number: US-TEVA-819899USA

PATIENT
  Age: 70 Year
  Sex: Female

DRUGS (4)
  1. AUSTEDO [Suspect]
     Active Substance: DEUTETRABENAZINE
     Indication: TARDIVE DYSKINESIA
     Dosage: 12 MILLIGRAM DAILY; INITIAL START, WEEK ONE FOR 7 WEEK TITRATION
     Route: 065
     Dates: start: 20171002
  2. AUSTEDO [Suspect]
     Active Substance: DEUTETRABENAZINE
     Dosage: 30 MILLIGRAM DAILY; WEEK 4 TITRATION, ONE 6 MG TABLET AND ONE 9 MG TABLET BID
     Route: 065
     Dates: start: 20171023
  3. AUSTEDO [Suspect]
     Active Substance: DEUTETRABENAZINE
     Dosage: 18 MILLIGRAM DAILY; WEEK 2, 18MG DAILY (9MG BID)
     Route: 065
     Dates: start: 201710
  4. AUSTEDO [Suspect]
     Active Substance: DEUTETRABENAZINE
     Dosage: 24 MILLIGRAM DAILY; WEEK THREE (ACTUAL START DATE OF THIS DOSE UNKNOWN)
     Route: 065
     Dates: start: 201710

REACTIONS (4)
  - Mouth ulceration [Recovered/Resolved]
  - Bruxism [Recovered/Resolved]
  - Urinary retention [Unknown]
  - Somnolence [Recovered/Resolved]

NARRATIVE: CASE EVENT DATE: 20171022
